FAERS Safety Report 20770364 (Version 1)
Quarter: 2022Q2

REPORT INFORMATION
  Report Type: Report from Study
  Country: US (occurrence: US)
  Receive Date: 20220429
  Receipt Date: 20220429
  Transmission Date: 20220720
  Serious: Yes (Hospitalization)
  Sender: FDA-Public Use
  Company Number: US-MYLANLABS-2022M1031599

PATIENT

DRUGS (4)
  1. AZITHROMYCIN [Suspect]
     Active Substance: AZITHROMYCIN
     Indication: Mycoplasma infection
     Dosage: UNK
     Route: 061
  2. DEXAMETHASONE [Suspect]
     Active Substance: DEXAMETHASONE
     Indication: Mycoplasma infection
     Dosage: UNK
     Route: 061
  3. METHYLPREDNISOLONE [Suspect]
     Active Substance: METHYLPREDNISOLONE
     Indication: Mycoplasma infection
     Dosage: UNK
     Route: 061
  4. NEOMYCIN [Suspect]
     Active Substance: NEOMYCIN
     Indication: Mycoplasma infection
     Dosage: UNK
     Route: 061

REACTIONS (1)
  - Drug ineffective [Unknown]
